FAERS Safety Report 9824211 (Version 1)
Quarter: 2014Q1

REPORT INFORMATION
  Report Type: Spontaneous
  Country: CA (occurrence: CA)
  Receive Date: 20140116
  Receipt Date: 20140116
  Transmission Date: 20141002
  Serious: Yes (Other)
  Sender: FDA-Public Use
  Company Number: CA-AMGEN-CANSP2014002427

PATIENT
  Age: 56 Year
  Sex: Female

DRUGS (9)
  1. ENBREL [Suspect]
     Indication: RHEUMATOID ARTHRITIS
     Dosage: 50 MG, UNK
     Route: 065
     Dates: start: 20120124
  2. GABAPENTIN [Concomitant]
     Dosage: 400 MG, BID
  3. LITHIUM [Concomitant]
     Dosage: 300 MG, QD
  4. AMLODIPINE [Concomitant]
     Dosage: 50 MG, QD
  5. PREDNISONE [Concomitant]
     Dosage: 5.5 MG, UNK
  6. HYDROXYCHLOROQUINE SULFATE [Concomitant]
     Dosage: 200 MG, UNK
  7. COVERSYL                           /00790702/ [Concomitant]
     Dosage: 8 MG, QD
  8. APO-LEVOCARB [Concomitant]
     Dosage: 25MG/100MG, THREE TIMES A DAY
  9. RISEDRONATE [Concomitant]
     Dosage: 150 MG, ONCE A MONTH

REACTIONS (1)
  - Parkinson^s disease [Not Recovered/Not Resolved]
